FAERS Safety Report 11198962 (Version 1)
Quarter: 2015Q2

REPORT INFORMATION
  Report Type: Other
  Country: JP (occurrence: JP)
  Receive Date: 20150618
  Receipt Date: 20150618
  Transmission Date: 20150821
  Serious: Yes (Other)
  Sender: FDA-Public Use
  Company Number: JP-LUPIN PHARMACEUTICALS INC.-2015-00830

PATIENT
  Age: 51 Year
  Sex: Male

DRUGS (7)
  1. CLINDAMYCIN [Suspect]
     Active Substance: CLINDAMYCIN\CLINDAMYCIN PHOSPHATE
     Indication: HEPATIC AMOEBIASIS
     Route: 065
  2. AZTREONAM. [Suspect]
     Active Substance: AZTREONAM
     Indication: HEPATIC AMOEBIASIS
     Route: 065
  3. CEFMETAZOLE [Suspect]
     Active Substance: CEFMETAZOLE
     Indication: HEPATIC AMOEBIASIS
     Route: 065
  4. PAROMOMYCIN [Concomitant]
     Active Substance: PAROMOMYCIN
     Indication: HEPATIC AMOEBIASIS
     Route: 065
  5. CEFEPIME [Suspect]
     Active Substance: CEFEPIME\CEFEPIME HYDROCHLORIDE
     Indication: HEPATIC AMOEBIASIS
     Route: 065
  6. CIPROFLOXACIN. [Suspect]
     Active Substance: CIPROFLOXACIN
     Indication: HEPATIC AMOEBIASIS
     Route: 065
  7. METRONIDAZOLE. [Concomitant]
     Active Substance: METRONIDAZOLE
     Indication: HEPATIC AMOEBIASIS
     Route: 065

REACTIONS (2)
  - Clostridium difficile infection [Unknown]
  - Pseudomembranous colitis [Unknown]
